FAERS Safety Report 7379149-X (Version None)
Quarter: 2011Q1

REPORT INFORMATION
  Report Type: 
  Country: None (occurrence: None)
  Receive Date: 20110328
  Receipt Date: 20110315
  Transmission Date: 20110831
  Serious: Yes (Hospitalization)
  Sender: FDA-Public Use
  Company Number: PHHY2011US21618

PATIENT
  Sex: Female
  Weight: 67.13 kg

DRUGS (15)
  1. ASPIRIN [Concomitant]
  2. FLEXERIL [Concomitant]
  3. NITROGLYCERIN [Concomitant]
  4. EXJADE [Suspect]
     Indication: MYELODYSPLASTIC SYNDROME
     Dosage: 1500 MG DAILY
     Route: 048
     Dates: start: 20101220, end: 20110304
  5. IMDUR [Concomitant]
     Dosage: UNK UKN, UNK
  6. CALCIUM [Concomitant]
  7. EXJADE [Suspect]
     Indication: IRON METABOLISM DISORDER
  8. PLAVIX [Concomitant]
  9. INSULIN [Concomitant]
  10. POTASSIUM CHLORIDE [Concomitant]
  11. PERCOCET [Concomitant]
  12. MULTI-VITAMIN [Concomitant]
  13. PRAVASTATIN [Concomitant]
     Dosage: UNK UKN, UNK
  14. LASIX [Concomitant]
  15. ALEVE [Concomitant]

REACTIONS (2)
  - STAPHYLOCOCCAL INFECTION [None]
  - GOUT [None]
